FAERS Safety Report 25017833 (Version 1)
Quarter: 2025Q1

REPORT INFORMATION
  Report Type: Spontaneous
  Country: IE (occurrence: IE)
  Receive Date: 20250227
  Receipt Date: 20250227
  Transmission Date: 20250409
  Serious: Yes (Other)
  Sender: VKT PHARMA PRIVATE LIMITED
  Company Number: IE-VKT-000640

PATIENT

DRUGS (3)
  1. ZONISAMIDE [Suspect]
     Active Substance: ZONISAMIDE
     Indication: Foetal exposure during pregnancy
     Route: 064
  2. CARBAMAZEPINE [Suspect]
     Active Substance: CARBAMAZEPINE
     Indication: Foetal exposure during pregnancy
     Route: 064
  3. LEVETIRACETAM [Suspect]
     Active Substance: LEVETIRACETAM
     Indication: Foetal exposure during pregnancy
     Route: 064

REACTIONS (2)
  - Foetal growth restriction [Unknown]
  - Foetal exposure during pregnancy [Unknown]
